FAERS Safety Report 25315721 (Version 1)
Quarter: 2025Q2

REPORT INFORMATION
  Report Type: Spontaneous
  Country: FR (occurrence: FR)
  Receive Date: 20250515
  Receipt Date: 20250515
  Transmission Date: 20250717
  Serious: Yes (Disabling)
  Sender: TEVA
  Company Number: None

PATIENT
  Age: 87 Year
  Sex: Male
  Weight: 102 kg

DRUGS (1)
  1. LEVOFLOXACIN [Suspect]
     Active Substance: LEVOFLOXACIN
     Indication: Staphylococcal bacteraemia
     Dosage: DOSE FORM: 1 FP
     Route: 048
     Dates: start: 20250226, end: 20250307

REACTIONS (1)
  - Tendon disorder [Unknown]

NARRATIVE: CASE EVENT DATE: 20250305
